FAERS Safety Report 18589319 (Version 2)
Quarter: 2021Q1

REPORT INFORMATION
  Report Type: Spontaneous
  Country: SE (occurrence: SE)
  Receive Date: 20201208
  Receipt Date: 20210127
  Transmission Date: 20210419
  Serious: Yes (Death, Hospitalization, Other)
  Sender: FDA-Public Use
  Company Number: SE-BIOVITRUM-2020SE7184

PATIENT
  Age: 67 Year
  Sex: Male

DRUGS (1)
  1. ANAKINRA [Suspect]
     Active Substance: ANAKINRA
     Indication: COVID-19
     Dosage: 100 MG X 4 IV
     Route: 042
     Dates: start: 20201014, end: 20201021

REACTIONS (7)
  - Cardiac failure [Fatal]
  - Candida sepsis [Fatal]
  - Acute kidney injury [Unknown]
  - Acute respiratory distress syndrome [Unknown]
  - Off label use [Recovered/Resolved]
  - Circulatory collapse [Fatal]
  - Pulmonary hypertension [Unknown]
